FAERS Safety Report 7341220-6 (Version None)
Quarter: 2011Q1

REPORT INFORMATION
  Report Type: 
  Country: None (occurrence: None)
  Receive Date: 20110309
  Receipt Date: 20110304
  Transmission Date: 20110831
  Serious: Yes (Hospitalization)
  Sender: FDA-Public Use
  Company Number: JP-BRISTOL-MYERS SQUIBB COMPANY-15575277

PATIENT
  Age: 72 Year
  Sex: Male

DRUGS (6)
  1. MELOXICAM [Suspect]
     Indication: RHEUMATOID ARTHRITIS
     Dosage: 1DF-1 TAB
  2. BUCILLAMINE [Suspect]
     Indication: RHEUMATOID ARTHRITIS
  3. SARPOGRELATE HCL [Suspect]
     Indication: RHEUMATOID ARTHRITIS
  4. PREDNISOLONE [Suspect]
     Indication: RHEUMATOID ARTHRITIS
  5. WARFARIN SODIUM [Suspect]
     Indication: CARDIOVASCULAR DISORDER
  6. METHOTREXATE [Suspect]
     Indication: RHEUMATOID ARTHRITIS

REACTIONS (2)
  - CEREBRAL INFARCTION [None]
  - ULCER HAEMORRHAGE [None]
